FAERS Safety Report 4970141-9 (Version None)
Quarter: 2006Q2

REPORT INFORMATION
  Report Type: 
  Country: None (occurrence: None)
  Receive Date: 20060406
  Receipt Date: 20060324
  Transmission Date: 20061013
  Serious: Yes (Death)
  Sender: FDA-Public Use
  Company Number: 2006042542

PATIENT
  Age: 45 Year
  Sex: Male

DRUGS (2)
  1. CEREBYX [Suspect]
     Indication: CONVULSION
     Dosage: 1500 MG (1500 MG, 1 IN 1D), INTRAVENOUS
     Route: 042
     Dates: start: 20060320
  2. ANTIEPILEPTICS (ANTIEPILEPTICS) [Concomitant]

REACTIONS (1)
  - SUDDEN DEATH [None]
